FAERS Safety Report 11350483 (Version 1)
Quarter: 2015Q3

REPORT INFORMATION
  Report Type: Spontaneous
  Country: US (occurrence: None)
  Receive Date: 20150806
  Receipt Date: 20150806
  Transmission Date: 20151125
  Serious: Yes (Hospitalization)
  Sender: FDA-Public Use
  Company Number: None

PATIENT
  Age: 21 Year
  Sex: Female
  Weight: 85.28 kg

DRUGS (4)
  1. CLINDAMYCIN [Concomitant]
     Active Substance: CLINDAMYCIN\CLINDAMYCIN PHOSPHATE
  2. CHATEAL [Suspect]
     Active Substance: ETHINYL ESTRADIOL\LEVONORGESTREL
     Indication: CONTRACEPTION
     Dosage: 1 PILL
     Route: 048
     Dates: start: 20150630, end: 20150804
  3. ANTIBIOTICS [Concomitant]
     Active Substance: UNSPECIFIED INGREDIENT
  4. IBUPROFEN. [Concomitant]
     Active Substance: IBUPROFEN

REACTIONS (18)
  - Panic attack [None]
  - Chest discomfort [None]
  - Social avoidant behaviour [None]
  - Cardiac disorder [None]
  - Decreased interest [None]
  - Feeling abnormal [None]
  - Anxiety [None]
  - Back pain [None]
  - Insomnia [None]
  - Dyspnoea [None]
  - Myositis [None]
  - Asthenia [None]
  - Libido decreased [None]
  - Nightmare [None]
  - Panic disorder [None]
  - Fatigue [None]
  - Depression [None]
  - Headache [None]

NARRATIVE: CASE EVENT DATE: 20150729
